FAERS Safety Report 5937129-2 (Version None)
Quarter: 2008Q4

REPORT INFORMATION
  Report Type: 
  Country: None (occurrence: None)
  Receive Date: 20081031
  Receipt Date: 20081028
  Transmission Date: 20090506
  Serious: Yes (Death)
  Sender: FDA-Public Use
  Company Number: PHHY2008DE26150

PATIENT
  Sex: Female

DRUGS (2)
  1. EXELON [Suspect]
     Indication: DEMENTIA ALZHEIMER'S TYPE
     Dosage: 4.6 MG/24 HRS
     Route: 062
     Dates: start: 20080519, end: 20080620
  2. EXELON [Suspect]
     Dosage: 9.5 MG/24 HRS
     Route: 062
     Dates: start: 20080620

REACTIONS (1)
  - DEATH [None]
